FAERS Safety Report 25280408 (Version 1)
Quarter: 2025Q2

REPORT INFORMATION
  Report Type: Spontaneous
  Country: US (occurrence: US)
  Receive Date: 20250507
  Receipt Date: 20250507
  Transmission Date: 20250716
  Serious: Yes (Other)
  Sender: TEVA
  Company Number: US-TEVA-VS-3328684

PATIENT
  Sex: Male

DRUGS (1)
  1. IMATINIB [Suspect]
     Active Substance: IMATINIB
     Indication: Product used for unknown indication
     Route: 048

REACTIONS (10)
  - Seizure [Unknown]
  - Product solubility abnormal [Unknown]
  - Blood pressure decreased [Unknown]
  - Feeling abnormal [Recovered/Resolved]
  - Heart rate abnormal [Unknown]
  - Pallor [Unknown]
  - Foreign body in throat [Unknown]
  - Crying [Unknown]
  - Product tampering [Unknown]
  - Eye discharge [Unknown]
